FAERS Safety Report 16739428 (Version 1)
Quarter: 2019Q3

REPORT INFORMATION
  Report Type: Spontaneous
  Country: US (occurrence: US)
  Receive Date: 20190708
  Receipt Date: 20190708
  Transmission Date: 20191005
  Serious: Yes (Hospitalization)
  Sender: FDA-Public Use
  Company Number: None

PATIENT
  Age: 82 Year
  Sex: Male
  Weight: 97 kg

DRUGS (1)
  1. PACLITAXEL. [Suspect]
     Active Substance: PACLITAXEL
     Indication: LUNG NEOPLASM MALIGNANT
     Route: 042
     Dates: start: 20190122, end: 20190204

REACTIONS (13)
  - Unresponsive to stimuli [None]
  - Syncope [None]
  - Infusion related reaction [None]
  - Hypotension [None]
  - Metabolic acidosis [None]
  - Electrocardiogram ST segment depression [None]
  - Hyperkalaemia [None]
  - Hyperglycaemia [None]
  - Dyspnoea [None]
  - Acute kidney injury [None]
  - Pneumonia bacterial [None]
  - Cough [None]
  - Dehydration [None]

NARRATIVE: CASE EVENT DATE: 20190204
